FAERS Safety Report 9462496 (Version 4)
Quarter: 2014Q2

REPORT INFORMATION
  Report Type: Report from Study
  Country: US (occurrence: US)
  Receive Date: 20130816
  Receipt Date: 20140619
  Transmission Date: 20141212
  Serious: Yes (Life-Threatening, Hospitalization, Other)
  Sender: FDA-Public Use
  Company Number: US-ACTELION-A-NJ2012-59156

PATIENT
  Age: 54 Year
  Sex: Female

DRUGS (4)
  1. TRACLEER [Suspect]
     Indication: PULMONARY ARTERIAL HYPERTENSION
     Dosage: 62.5 MG, UNK
     Route: 048
     Dates: start: 20030317
  2. TRACLEER [Suspect]
     Dosage: 125 MG, BID
     Route: 048
  3. COUMADIN [Concomitant]
  4. ADCIRCA [Concomitant]

REACTIONS (10)
  - Ventricular extrasystoles [Recovering/Resolving]
  - Palpitations [Recovering/Resolving]
  - Pulmonary arterial hypertension [Unknown]
  - Cardiac failure congestive [Recovered/Resolved]
  - Oropharyngeal pain [Recovering/Resolving]
  - Back pain [Recovering/Resolving]
  - Rhinorrhoea [Recovering/Resolving]
  - Dyspnoea [Recovered/Resolved]
  - Non-cardiac chest pain [Recovered/Resolved]
  - Oedema peripheral [Recovered/Resolved]
